FAERS Safety Report 23580343 (Version 1)
Quarter: 2024Q1

REPORT INFORMATION
  Report Type: Spontaneous
  Country: FR (occurrence: FR)
  Receive Date: 20240229
  Receipt Date: 20240229
  Transmission Date: 20240409
  Serious: Yes (Hospitalization)
  Sender: FDA-Public Use
  Company Number: None

PATIENT
  Age: 56 Year
  Sex: Male

DRUGS (1)
  1. VIREAD [Suspect]
     Active Substance: TENOFOVIR DISOPROXIL FUMARATE
     Indication: Prophylaxis against HIV infection
     Dosage: 245 MG, QD
     Route: 048
     Dates: start: 202306, end: 202310

REACTIONS (3)
  - Fracture [Recovered/Resolved]
  - Osteopenia [Recovering/Resolving]
  - Hyperphosphaturia [Recovering/Resolving]

NARRATIVE: CASE EVENT DATE: 20230901
